FAERS Safety Report 22211624 (Version 1)
Quarter: 2023Q2

REPORT INFORMATION
  Report Type: Spontaneous
  Country: JP (occurrence: None)
  Receive Date: 20230414
  Receipt Date: 20230414
  Transmission Date: 20230721
  Serious: Yes (Death, Life-Threatening, Other)
  Sender: FDA-Public Use
  Company Number: 2023A085905

PATIENT
  Age: 66 Year
  Sex: Male
  Weight: 69 kg

DRUGS (9)
  1. IMFINZI [Suspect]
     Active Substance: DURVALUMAB
     Indication: Small cell lung cancer
     Route: 042
     Dates: start: 20230117, end: 20230214
  2. ETOPOSIDE [Suspect]
     Active Substance: ETOPOSIDE
     Indication: Small cell lung cancer
     Dosage: ON DAY 1, 2, AND 3 OF EACH CYCLE
     Route: 041
     Dates: start: 20230117, end: 20230119
  3. ETOPOSIDE [Suspect]
     Active Substance: ETOPOSIDE
     Indication: Small cell lung cancer
     Dosage: ON DAY 1, 2, AND 3 OF EACH CYCLE
     Route: 041
     Dates: start: 20230214, end: 20230216
  4. CISPLATIN [Suspect]
     Active Substance: CISPLATIN
     Indication: Small cell lung cancer
     Route: 041
     Dates: start: 20230117, end: 20230117
  5. CISPLATIN [Suspect]
     Active Substance: CISPLATIN
     Indication: Small cell lung cancer
     Route: 041
     Dates: start: 20230214, end: 20230214
  6. RABEPRAZOLE SODIUM [Concomitant]
     Active Substance: RABEPRAZOLE SODIUM
     Dosage: DOSE UNKNOWN
     Route: 048
     Dates: start: 20230214, end: 20230217
  7. MINNEBRO OD [Concomitant]
     Dosage: DOSE UNKNOWN
     Route: 048
     Dates: start: 20230214, end: 20230217
  8. KEISHIKASHAKUYAKUTO [Concomitant]
     Dosage: DOSE UNKNOWN
     Route: 065
     Dates: start: 20230214, end: 20230217
  9. ROSUVASTATIN [Concomitant]
     Active Substance: ROSUVASTATIN
     Dosage: DOSE UNKNOWN
     Route: 048
     Dates: start: 20230214, end: 20230217

REACTIONS (5)
  - Septic shock [Fatal]
  - Neutrophil count decreased [Recovering/Resolving]
  - Non-cardiogenic pulmonary oedema [Unknown]
  - Respiratory failure [Unknown]
  - Pneumonia [Unknown]

NARRATIVE: CASE EVENT DATE: 20230130
